FAERS Safety Report 6573634-6 (Version None)
Quarter: 2010Q1

REPORT INFORMATION
  Report Type: 
  Country: None (occurrence: None)
  Receive Date: 20100208
  Receipt Date: 20100205
  Transmission Date: 20100710
  Serious: Yes (Other)
  Sender: FDA-Public Use
  Company Number: NL-ROCHE-682816

PATIENT
  Age: 65 Year
  Sex: Male

DRUGS (3)
  1. AVASTIN [Suspect]
     Route: 042
  2. AVASTIN [Suspect]
     Route: 042
  3. XELODA [Concomitant]
     Route: 048

REACTIONS (1)
  - DISEASE PROGRESSION [None]
